FAERS Safety Report 14562090 (Version 1)
Quarter: 2018Q1

REPORT INFORMATION
  Report Type: Spontaneous
  Country: US (occurrence: US)
  Receive Date: 20180222
  Receipt Date: 20180222
  Transmission Date: 20180509
  Serious: Yes (Other)
  Sender: FDA-Public Use
  Company Number: US-BAYER-2018-032345

PATIENT
  Sex: Female
  Weight: 57 kg

DRUGS (3)
  1. MIRALAX [Suspect]
     Active Substance: POLYETHYLENE GLYCOL 3350
     Dosage: 2 DF, QD
     Route: 048
  2. CHOLESTEROL [Concomitant]
     Active Substance: CHOLESTEROL
  3. HEART [Concomitant]

REACTIONS (6)
  - Drug dose omission [Unknown]
  - Product use issue [Unknown]
  - Drug dependence [Unknown]
  - Nephrolithiasis [Not Recovered/Not Resolved]
  - Blood urine present [Unknown]
  - Product prescribing issue [Unknown]
